FAERS Safety Report 10048827 (Version 2)
Quarter: 2014Q2

REPORT INFORMATION
  Report Type: Spontaneous
  Country: US (occurrence: US)
  Receive Date: 20140331
  Receipt Date: 20140410
  Transmission Date: 20141212
  Serious: Yes (Other)
  Sender: FDA-Public Use
  Company Number: US-PFIZER INC-2014089281

PATIENT
  Sex: Male

DRUGS (3)
  1. GEMFIBROZIL [Suspect]
     Dosage: 600 MG, UNK
     Dates: start: 2014
  2. GEMFIBROZIL [Interacting]
     Dosage: 600 MG, UNK
  3. FENOFIBRATE [Interacting]
     Dosage: 150 MG, UNK

REACTIONS (16)
  - Blood cholesterol increased [Unknown]
  - Influenza like illness [Unknown]
  - Hyperhidrosis [Unknown]
  - Dyspnoea [Unknown]
  - Burning sensation [Unknown]
  - Headache [Unknown]
  - Weight decreased [Unknown]
  - Vision blurred [Unknown]
  - Vitamin B6 increased [Unknown]
  - Vitamin B12 deficiency [Unknown]
  - Immune system disorder [Unknown]
  - Head discomfort [Unknown]
  - Drug interaction [Unknown]
  - Feeling abnormal [Unknown]
  - Dysstasia [Unknown]
  - Malaise [Unknown]
